FAERS Safety Report 9555033 (Version 1)
Quarter: 2013Q3

REPORT INFORMATION
  Report Type: Spontaneous
  Country: FR (occurrence: FR)
  Receive Date: 20130926
  Receipt Date: 20130926
  Transmission Date: 20140515
  Serious: Yes (Life-Threatening, Hospitalization, Other)
  Sender: FDA-Public Use
  Company Number: FR-009507513-1309FRA006634

PATIENT
  Age: 88 Year
  Sex: Female

DRUGS (4)
  1. NORSET [Suspect]
     Dosage: UNK UNK, UNKNOWN
     Route: 048
     Dates: start: 20130627, end: 20130731
  2. OLMETEC [Interacting]
     Dosage: UNK UNK, UNKNOWN
     Route: 048
     Dates: end: 20130731
  3. INEXIUM [Interacting]
     Dosage: UNK, UNKNOWN
     Route: 048
     Dates: end: 20130731
  4. ALDACTONE TABLETS [Interacting]
     Dosage: UNK, UNKNOWN
     Route: 048
     Dates: end: 20130731

REACTIONS (2)
  - Renal failure acute [Recovered/Resolved]
  - Hyponatraemia [Recovered/Resolved]
